FAERS Safety Report 21032341 (Version 2)
Quarter: 2022Q3

REPORT INFORMATION
  Report Type: Spontaneous
  Country: US (occurrence: US)
  Receive Date: 20220701
  Receipt Date: 20220801
  Transmission Date: 20221026
  Serious: Yes (Other)
  Sender: FDA-Public Use
  Company Number: US-PFIZER INC-2021256878

PATIENT
  Age: 63 Year
  Sex: Female
  Weight: 54.43 kg

DRUGS (5)
  1. ESTRING [Suspect]
     Active Substance: ESTRADIOL
     Indication: Bladder prolapse
     Dosage: UNK
     Dates: start: 2018
  2. ESTRING [Suspect]
     Active Substance: ESTRADIOL
     Indication: Hypertonic bladder
  3. DETROL LA [Concomitant]
     Active Substance: TOLTERODINE TARTRATE
     Dosage: 4 MG
  4. ANASTROZOLE [Concomitant]
     Active Substance: ANASTROZOLE
     Indication: Breast cancer
     Dosage: UNK
  5. TOZINAMERAN [Concomitant]
     Active Substance: TOZINAMERAN
     Indication: COVID-19 immunisation

REACTIONS (8)
  - Drug dependence [Unknown]
  - Urinary incontinence [Unknown]
  - Drug ineffective for unapproved indication [Unknown]
  - Counterfeit product administered [Unknown]
  - Contraindicated product administered [Unknown]
  - Off label use [Unknown]
  - Drug effective for unapproved indication [Unknown]
  - Product prescribing error [Unknown]

NARRATIVE: CASE EVENT DATE: 20180101
